FAERS Safety Report 18108882 (Version 2)
Quarter: 2020Q4

REPORT INFORMATION
  Report Type: Spontaneous
  Country: US (occurrence: US)
  Receive Date: 20200804
  Receipt Date: 20201222
  Transmission Date: 20210113
  Serious: Yes (Other)
  Sender: FDA-Public Use
  Company Number: US-GILEAD-2020-0486789

PATIENT
  Age: 37 Year
  Sex: Male
  Weight: 130.6 kg

DRUGS (16)
  1. FINASTERIDE. [Concomitant]
     Active Substance: FINASTERIDE
  2. PREZISTA [Concomitant]
     Active Substance: DARUNAVIR ETHANOLATE
  3. TAMSULOSIN [Concomitant]
     Active Substance: TAMSULOSIN
  4. QNASL [Concomitant]
     Active Substance: BECLOMETHASONE DIPROPIONATE
  5. DICLOFENAC SODIUM. [Concomitant]
     Active Substance: DICLOFENAC SODIUM
  6. TRUVADA [Suspect]
     Active Substance: EMTRICITABINE\TENOFOVIR DISOPROXIL FUMARATE
     Indication: HIV INFECTION
     Dosage: UNK
     Route: 048
     Dates: start: 2004, end: 20140109
  7. KALETRA [Concomitant]
     Active Substance: LOPINAVIR\RITONAVIR
  8. AMITRIPTYLINE [Concomitant]
     Active Substance: AMITRIPTYLINE
  9. PRAVASTATIN SODIUM. [Concomitant]
     Active Substance: PRAVASTATIN SODIUM
  10. STRIBILD [Suspect]
     Active Substance: COBICISTAT\ELVITEGRAVIR\EMTRICITABINE\TENOFOVIR DISOPROXIL FUMARATE
     Indication: HIV INFECTION
     Dosage: UNK
     Route: 048
     Dates: start: 2004
  11. VALACYCLOVIR HCL [Concomitant]
     Active Substance: VALACYCLOVIR HYDROCHLORIDE
  12. RITONAVIR. [Concomitant]
     Active Substance: RITONAVIR
  13. AMLODIPINE (ALS BESILAAT) SANDOZ [Concomitant]
  14. ISENTRESS [Concomitant]
     Active Substance: RALTEGRAVIR POTASSIUM
  15. CITALOPRAM [Concomitant]
     Active Substance: CITALOPRAM HYDROBROMIDE
  16. OMEPRAZOLE. [Concomitant]
     Active Substance: OMEPRAZOLE

REACTIONS (11)
  - Hypertension [Not Recovered/Not Resolved]
  - Erectile dysfunction [Not Recovered/Not Resolved]
  - Pneumonia [Recovered/Resolved]
  - Pain [Not Recovered/Not Resolved]
  - Anaemia [Not Recovered/Not Resolved]
  - Anxiety [Not Recovered/Not Resolved]
  - Hepatitis C [Not Recovered/Not Resolved]
  - Anhedonia [Not Recovered/Not Resolved]
  - Chronic kidney disease [Unknown]
  - Emotional distress [Not Recovered/Not Resolved]
  - Major depression [Not Recovered/Not Resolved]

NARRATIVE: CASE EVENT DATE: 200811
